FAERS Safety Report 8047746-4 (Version None)
Quarter: 2012Q1

REPORT INFORMATION
  Report Type: 
  Country: None (occurrence: None)
  Receive Date: 20120116
  Receipt Date: 20120111
  Transmission Date: 20120608
  Serious: Yes (Hospitalization)
  Sender: FDA-Public Use
  Company Number: FR-AMGEN-FRASP2012001758

PATIENT
  Age: 46 Year
  Sex: Male

DRUGS (4)
  1. TAXOTERE [Suspect]
     Indication: METASTASES TO LUNG
     Dosage: 148 MG, UNK
     Route: 042
     Dates: start: 20111121, end: 20111121
  2. SOLU-MEDROL [Suspect]
     Indication: METASTASES TO LUNG
     Dosage: 80 MG, UNK
     Route: 042
     Dates: start: 20111121, end: 20111121
  3. ONDANSETRON [Suspect]
     Indication: METASTASES TO LUNG
     Dosage: 8 MG, UNK
     Route: 042
     Dates: start: 20111121, end: 20111121
  4. NEULASTA [Suspect]
     Indication: CHEMOTHERAPY
     Dosage: 6 MG, UNK
     Route: 058
     Dates: start: 20111125, end: 20111125

REACTIONS (1)
  - NEURALGIA [None]
